FAERS Safety Report 21374136 (Version 1)
Quarter: 2022Q3

REPORT INFORMATION
  Report Type: Spontaneous
  Country: US (occurrence: US)
  Receive Date: 20220926
  Receipt Date: 20220926
  Transmission Date: 20221026
  Serious: Yes (Other)
  Sender: FDA-Public Use
  Company Number: US-CURIUM-2022000647

PATIENT
  Age: 44 Year
  Sex: Female

DRUGS (1)
  1. SODIUM IODIDE I-131 [Suspect]
     Active Substance: SODIUM IODIDE I-131
     Indication: Basedow^s disease
     Route: 065
     Dates: start: 1997, end: 1997

REACTIONS (2)
  - Endocrine ophthalmopathy [Recovered/Resolved]
  - Facial bones fracture [Recovered/Resolved]
